FAERS Safety Report 10172998 (Version 1)
Quarter: 2014Q2

REPORT INFORMATION
  Report Type: Report from Study
  Country: US (occurrence: None)
  Receive Date: 20140513
  Receipt Date: 20140513
  Transmission Date: 20141212
  Serious: Yes (Life-Threatening, Hospitalization, Disabling)
  Sender: FDA-Public Use
  Company Number: TH-2014-00040

PATIENT
  Age: 57 Year
  Sex: Male
  Weight: 87 kg

DRUGS (2)
  1. EGRIFTA [Suspect]
     Indication: PRODUCT USED FOR UNKNOWN INDICATION
     Dosage: 2 MG, 1 IN 1 D
     Route: 058
     Dates: start: 20120127
  2. EGRIFTA [Suspect]
     Indication: LIPODYSTROPHY ACQUIRED
     Dosage: UNKNOWN (1 IN 1 D)
     Route: 058
     Dates: start: 20130819

REACTIONS (4)
  - Extradural abscess [None]
  - Septic arthritis streptococcal [None]
  - Staphylococcal abscess [None]
  - Meningitis staphylococcal [None]
